FAERS Safety Report 6834943-6 (Version None)
Quarter: 2010Q3

REPORT INFORMATION
  Report Type: 
  Country: None (occurrence: None)
  Receive Date: 20100712
  Receipt Date: 20070419
  Transmission Date: 20110219
  Serious: No
  Sender: FDA-Public Use
  Company Number: US-PFIZER INC-2007032862

PATIENT
  Sex: Female
  Weight: 53.181 kg

DRUGS (5)
  1. CHANTIX [Suspect]
     Indication: SMOKING CESSATION THERAPY
     Route: 048
     Dates: start: 20070402
  2. PROTONIX [Concomitant]
  3. TRILEPTAL [Concomitant]
  4. CYMBALTA [Concomitant]
  5. PLAVIX [Concomitant]

REACTIONS (4)
  - NAUSEA [None]
  - PRURITUS [None]
  - RASH [None]
  - SCRATCH [None]
